FAERS Safety Report 5848447-0 (Version None)
Quarter: 2008Q3

REPORT INFORMATION
  Report Type: 
  Country: None (occurrence: None)
  Receive Date: 20080814
  Receipt Date: 20080812
  Transmission Date: 20090109
  Serious: Yes (Hospitalization)
  Sender: FDA-Public Use
  Company Number: TCI2008A04230

PATIENT
  Age: 47 Year
  Sex: Female

DRUGS (5)
  1. LANSAP 400 (LANSOPRAZOLE, CLARITHROMYCIN, AMOXICILLIN) (PREPARATION FO [Suspect]
     Indication: HELICOBACTER INFECTION
     Dosage: 1 CARD (0.5 CARD, 2 IN 1 D) PER ORAL
     Route: 048
     Dates: start: 20080712, end: 20080719
  2. ADALAT L (NIFEDIPINE) (TABLETS) [Concomitant]
  3. ALDOMET (METHYLDOPA) (TABLETS) [Concomitant]
  4. MERCAZOLE (THIAMAZOLE) (TABLETS) [Concomitant]
  5. POTASSIUM IODIDE (PREPARATION FOR ORAL USE (NOS)) [Concomitant]

REACTIONS (1)
  - ECZEMA [None]
